FAERS Safety Report 4310757-6 (Version None)
Quarter: 2004Q1

REPORT INFORMATION
  Report Type: 
  Country: None (occurrence: None)
  Receive Date: 20040302
  Receipt Date: 20040220
  Transmission Date: 20041129
  Serious: Yes (Hospitalization, Other)
  Sender: FDA-Public Use
  Company Number: JP-JNJFOC-20030800941

PATIENT
  Age: 64 Year
  Sex: Male
  Weight: 66 kg

DRUGS (15)
  1. REMICADE [Suspect]
     Dosage: 3 MG/KG, 1 IN 1 AS NECESSARY, INTRAVENOUS DRIP
     Route: 041
     Dates: start: 20001114, end: 20001114
  2. REMICADE [Suspect]
     Dosage: 3 MG/KG, 1 IN 1 AS NECESSARY, INTRAVENOUS DRIP
     Route: 041
     Dates: start: 20010109, end: 20010109
  3. REMICADE [Suspect]
     Dosage: 3 MG/KG, 1 IN 1 AS NECESSARY, INTRAVENOUS DRIP
     Route: 041
     Dates: start: 20010306, end: 20010306
  4. REMICADE [Suspect]
     Dosage: 3 MG/KG, 1 IN 1 AS NECESSARY, INTRAVENOUS DRIP
     Route: 041
     Dates: start: 20010501, end: 20010501
  5. RHEUMATREX [Concomitant]
  6. PREDNISOLONE [Concomitant]
  7. AZULFIDINE [Concomitant]
  8. FOLIAMIN (FOLIC ACID) [Concomitant]
  9. HYPEN (ETODOLAC) [Concomitant]
  10. SELTOUCH (FELBINAC) PATCH [Concomitant]
  11. MOHRUS TAPE ( KETOPROFEN) PATCH [Concomitant]
  12. VOLTAREN [Concomitant]
  13. SELBEX CP (TEPRENONE) [Concomitant]
  14. TAGAMET [Concomitant]
  15. ZANTAC [Concomitant]

REACTIONS (6)
  - ARTHRALGIA [None]
  - GASTRIC CANCER [None]
  - HYPOAESTHESIA [None]
  - OSTEONECROSIS [None]
  - PAIN IN EXTREMITY [None]
  - RHEUMATOID ARTHRITIS [None]
